FAERS Safety Report 25774245 (Version 1)
Quarter: 2025Q3

REPORT INFORMATION
  Report Type: Report from Study
  Country: CA (occurrence: CA)
  Receive Date: 20250908
  Receipt Date: 20250908
  Transmission Date: 20251020
  Serious: Yes (Other)
  Sender: DAIICHI
  Company Number: CA-AstraZeneca-CH-00920747A

PATIENT
  Age: 83 Year
  Sex: Female
  Weight: 56.5 kg

DRUGS (1)
  1. ENHERTU [Suspect]
     Active Substance: FAM-TRASTUZUMAB DERUXTECAN-NXKI
     Indication: Oesophageal cancer metastatic
     Dosage: 275 MG, ONCE EVERY 3 WK
     Route: 042
     Dates: start: 20250707, end: 20250707

REACTIONS (3)
  - Incarcerated hernia [Unknown]
  - Asthenia [Recovered/Resolved]
  - Nausea [Recovered/Resolved]

NARRATIVE: CASE EVENT DATE: 20250725
